FAERS Safety Report 25587235 (Version 1)
Quarter: 2025Q3

REPORT INFORMATION
  Report Type: Spontaneous
  Country: US (occurrence: None)
  Receive Date: 20250721
  Receipt Date: 20250721
  Transmission Date: 20251021
  Serious: No
  Sender: FDA-CTU
  Company Number: None

PATIENT

DRUGS (1)
  1. ORENCIA [Suspect]
     Active Substance: ABATACEPT

REACTIONS (10)
  - Pain [None]
  - Discomfort [None]
  - Depression [None]
  - Insomnia [None]
  - Decreased appetite [None]
  - Anhedonia [None]
  - Fatigue [None]
  - Disturbance in attention [None]
  - Liver disorder [None]
  - Systemic lupus erythematosus [None]
